FAERS Safety Report 17808488 (Version 1)
Quarter: 2020Q2

REPORT INFORMATION
  Report Type: Spontaneous
  Country: GB (occurrence: GB)
  Receive Date: 20200520
  Receipt Date: 20200520
  Transmission Date: 20200714
  Serious: Yes (Other)
  Sender: FDA-Public Use
  Company Number: GB-SUN PHARMACEUTICAL INDUSTRIES LTD-2020RR-247865

PATIENT
  Age: 64 Year
  Sex: Male
  Weight: 83 kg

DRUGS (3)
  1. RABEPRAZOLE [Concomitant]
     Active Substance: RABEPRAZOLE
     Indication: ILL-DEFINED DISORDER
     Dosage: USE AS DIRECTED ()
     Route: 065
     Dates: start: 20200420
  2. OMEPRAZOLE. [Concomitant]
     Active Substance: OMEPRAZOLE
     Indication: ILL-DEFINED DISORDER
     Dosage: 2 EVERY DAY UNTIL REVIEWED BY HOSPITAL ()
     Route: 065
     Dates: start: 20191024, end: 20200403
  3. LANSOPRAZOLE. [Suspect]
     Active Substance: LANSOPRAZOLE
     Indication: PRODUCT USED FOR UNKNOWN INDICATION
     Dosage: TAKE ONE ONCE DAILY ()
     Route: 065
     Dates: start: 20200310

REACTIONS (1)
  - Erectile dysfunction [Recovered/Resolved]
